FAERS Safety Report 18013922 (Version 4)
Quarter: 2020Q3

REPORT INFORMATION
  Report Type: Spontaneous
  Country: DE (occurrence: DE)
  Receive Date: 20200713
  Receipt Date: 20200812
  Transmission Date: 20201103
  Serious: Yes (Hospitalization, Other)
  Sender: FDA-Public Use
  Company Number: DE-US-PROVELL PHARMACEUTICALS LLC-E2B_90078768

PATIENT
  Sex: Female
  Weight: 60 kg

DRUGS (2)
  1. EUTHYROX [Suspect]
     Active Substance: LEVOTHYROXINE SODIUM
     Indication: BASEDOW^S DISEASE
     Dates: start: 201202, end: 2015
  2. EUTHYROX [Suspect]
     Active Substance: LEVOTHYROXINE SODIUM
     Dates: start: 2015, end: 201911

REACTIONS (12)
  - Pneumothorax [Unknown]
  - Nausea [Recovered/Resolved]
  - Alopecia [Recovered/Resolved]
  - Impaired quality of life [Recovered/Resolved]
  - Fall [Recovered/Resolved]
  - Headache [Recovered/Resolved]
  - Dizziness [Recovered/Resolved]
  - Facial bones fracture [Recovered/Resolved]
  - Vomiting [Recovered/Resolved]
  - Arthralgia [Recovered/Resolved]
  - Onychoclasis [Recovered/Resolved]
  - Pneumothorax traumatic [Recovered/Resolved]

NARRATIVE: CASE EVENT DATE: 20140815
